FAERS Safety Report 16657916 (Version 1)
Quarter: 2019Q3

REPORT INFORMATION
  Report Type: Spontaneous
  Country: US (occurrence: US)
  Receive Date: 20190801
  Receipt Date: 20190801
  Transmission Date: 20191004
  Serious: No
  Sender: FDA-Public Use
  Company Number: US-EX USA HOLDINGS-EXHL20192324

PATIENT
  Age: 30 Year
  Sex: Female

DRUGS (1)
  1. ORSYTHIA [Suspect]
     Active Substance: ETHINYL ESTRADIOL\LEVONORGESTREL
     Indication: ORAL CONTRACEPTION
     Dosage: UNKNOWN
     Route: 048
     Dates: start: 201906

REACTIONS (3)
  - Anger [Not Recovered/Not Resolved]
  - Product substitution issue [None]
  - Mood swings [Not Recovered/Not Resolved]

NARRATIVE: CASE EVENT DATE: 201906
